FAERS Safety Report 5594390-4 (Version None)
Quarter: 2008Q1

REPORT INFORMATION
  Report Type: 
  Country: None (occurrence: None)
  Receive Date: 20080115
  Receipt Date: 20080115
  Transmission Date: 20080703
  Serious: No
  Sender: FDA-Public Use
  Company Number: None

PATIENT
  Age: 61 Year
  Sex: Female
  Weight: 61.2356 kg

DRUGS (1)
  1. LORAZEPAM [Suspect]
     Indication: SOMNOLENCE
     Dosage: 4MG  FOR SLEEP

REACTIONS (3)
  - PHARMACEUTICAL PRODUCT COMPLAINT [None]
  - POLLAKIURIA [None]
  - RESTLESS LEGS SYNDROME [None]
